FAERS Safety Report 14968138 (Version 1)
Quarter: 2018Q2

REPORT INFORMATION
  Report Type: Spontaneous
  Country: US (occurrence: US)
  Receive Date: 20180604
  Receipt Date: 20180604
  Transmission Date: 20180711
  Serious: No
  Sender: FDA-Public Use
  Company Number: US-MYLANLABS-2018M1024278

PATIENT
  Sex: Male

DRUGS (1)
  1. PREDNISONE. [Suspect]
     Active Substance: PREDNISONE
     Indication: PRODUCT USED FOR UNKNOWN INDICATION
     Dosage: UNK

REACTIONS (7)
  - Lethargy [Unknown]
  - Balance disorder [Unknown]
  - Feeling abnormal [Unknown]
  - Dysphonia [Unknown]
  - Muscular weakness [Unknown]
  - Dizziness [Unknown]
  - Dyspepsia [Unknown]
